FAERS Safety Report 14819990 (Version 1)
Quarter: 2018Q2

REPORT INFORMATION
  Report Type: Spontaneous
  Country: US (occurrence: US)
  Receive Date: 20180427
  Receipt Date: 20180427
  Transmission Date: 20180711
  Serious: Yes (Hospitalization, Other)
  Sender: FDA-Public Use
  Company Number: US-ASTELLAS-2018US019516

PATIENT
  Age: 34 Year
  Sex: Female

DRUGS (3)
  1. TACROLIMUS. [Suspect]
     Active Substance: TACROLIMUS
     Indication: PANCREAS TRANSPLANT
     Dosage: UNK UNK, UNKNOWN FREQ. (8-12)
     Route: 065
  2. MYCOPHENOLATE SODIUM [Suspect]
     Active Substance: MYCOPHENOLATE SODIUM
     Indication: PANCREAS TRANSPLANT
     Route: 065
  3. DEXTRAN [Concomitant]
     Active Substance: DEXTRAN
     Indication: ANTICOAGULANT THERAPY
     Dosage: UNK UNK, UNKNOWN FREQ.
     Route: 042

REACTIONS (8)
  - Pyrexia [Unknown]
  - Donor specific antibody present [Unknown]
  - Venous thrombosis [Unknown]
  - Leukocytosis [Unknown]
  - Off label use [Unknown]
  - Pneumonia aspiration [Unknown]
  - Transplant rejection [Unknown]
  - Hyperglycaemia [Unknown]
